FAERS Safety Report 8506224-6 (Version None)
Quarter: 2012Q3

REPORT INFORMATION
  Report Type: 
  Country: None (occurrence: None)
  Receive Date: 20120706
  Receipt Date: 20120706
  Transmission Date: 20120928
  Serious: No
  Sender: FDA-Public Use
  Company Number: None

PATIENT
  Sex: Male
  Weight: 62 kg

DRUGS (6)
  1. ETOPOSIDE [Suspect]
     Dosage: 145 MG
  2. RITUXIMAB (MOAB C2B8 ANTI CD 20, CHIMERIC) [Suspect]
     Dosage: 630 MG
  3. CYCLOPHOSPHAMIDE [Suspect]
     Dosage: 2177 MG
  4. DOXORUBICIN HYDROCHLORIDE [Suspect]
     Dosage: 29 MG
  5. PREDNISONE [Suspect]
     Dosage: 101 MG
  6. VINCRISTINE SULFATE [Suspect]
     Dosage: .65 MG

REACTIONS (1)
  - NEUTROPENIA [None]
